FAERS Safety Report 25697507 (Version 1)
Quarter: 2025Q3

REPORT INFORMATION
  Report Type: Report from Study
  Country: US (occurrence: US)
  Receive Date: 20250818
  Receipt Date: 20250818
  Transmission Date: 20251020
  Serious: Yes (Other)
  Sender: ABBVIE
  Company Number: US-ABBVIE-6418866

PATIENT
  Age: 56 Year
  Sex: Male

DRUGS (1)
  1. SKYRIZI [Suspect]
     Active Substance: RISANKIZUMAB-RZAA
     Indication: Psoriatic arthropathy
     Route: 058
     Dates: start: 20230326

REACTIONS (2)
  - Knee arthroplasty [Unknown]
  - Psoriatic arthropathy [Unknown]

NARRATIVE: CASE EVENT DATE: 20250501
